FAERS Safety Report 10489377 (Version 1)
Quarter: 2014Q4

REPORT INFORMATION
  Report Type: Spontaneous
  Country: IE (occurrence: IE)
  Receive Date: 20141002
  Receipt Date: 20141002
  Transmission Date: 20150528
  Serious: Yes (Other)
  Sender: FDA-Public Use
  Company Number: IE-TEVA-511745ISR

PATIENT
  Age: 79 Year

DRUGS (4)
  1. NU-SEALS 75 MG GASTRO-RESISTANT TABLETS [Concomitant]
     Indication: PRODUCT USED FOR UNKNOWN INDICATION
  2. AVAMYS [Concomitant]
     Active Substance: FLUTICASONE FUROATE
     Indication: SINUSITIS
     Dosage: TWO SPRAYS DAILY
     Dates: start: 20140905
  3. LIPOSTAT [Concomitant]
     Active Substance: PRAVASTATIN SODIUM
  4. CLARIE LA 500MG PROLONGED-RELEASE TABLETS [Suspect]
     Active Substance: CLARITHROMYCIN
     Indication: SINUSITIS
     Dosage: 500 MG
     Route: 048
     Dates: start: 20140905

REACTIONS (2)
  - Lip swelling [Not Recovered/Not Resolved]
  - Gingival disorder [Not Recovered/Not Resolved]

NARRATIVE: CASE EVENT DATE: 20140906
